FAERS Safety Report 6384067-X (Version None)
Quarter: 2009Q3

REPORT INFORMATION
  Report Type: 
  Country: None (occurrence: None)
  Receive Date: 20090928
  Receipt Date: 20090915
  Transmission Date: 20100115
  Serious: Yes (Other)
  Sender: FDA-Public Use
  Company Number: 230080J09BRA

PATIENT
  Age: 43 Year
  Sex: Female

DRUGS (9)
  1. REBIF [Suspect]
     Indication: RELAPSING-REMITTING MULTIPLE SCLEROSIS
     Dosage: 22 MCG, 3 IN 1 WEEKS
     Dates: start: 20021206
  2. CAPTOPRIL [Concomitant]
  3. HYDROCHLOROTHIAZIDE [Concomitant]
  4. ASPIRIN [Concomitant]
  5. OMEPRAZOLE [Concomitant]
  6. PARACETAMOL (PARACETAMOL) [Concomitant]
  7. AMITRIPTYLINE HCL [Concomitant]
  8. METREXATO (SODIUM METHOTREXATE) (METHOTREXATE SODIUM) [Concomitant]
  9. AMLODIPINE [Concomitant]

REACTIONS (6)
  - DEPRESSION [None]
  - FIBROMYALGIA [None]
  - MULTIPLE SCLEROSIS RELAPSE [None]
  - OPTIC NEURITIS [None]
  - SYSTEMIC LUPUS ERYTHEMATOSUS [None]
  - VISUAL PATHWAY DISORDER [None]
